FAERS Safety Report 6985483-5 (Version None)
Quarter: 2010Q3

REPORT INFORMATION
  Report Type: 
  Country: None (occurrence: None)
  Receive Date: 20100915
  Receipt Date: 20100910
  Transmission Date: 20110219
  Serious: Yes (Other)
  Sender: FDA-Public Use
  Company Number: B0659748A

PATIENT
  Sex: Male

DRUGS (5)
  1. LAMICTAL [Suspect]
     Indication: EPILEPSY
     Route: 048
     Dates: start: 20060601
  2. PARLODEL [Suspect]
     Indication: PARKINSON'S DISEASE
     Dosage: 10MG THREE TIMES PER DAY
     Route: 048
     Dates: start: 20030101, end: 20100519
  3. MODOPAR [Suspect]
     Indication: PARKINSON'S DISEASE
     Dosage: 250MG FOUR TIMES PER DAY
     Route: 048
     Dates: start: 20030101
  4. STAGID [Suspect]
     Route: 048
     Dates: start: 20030101
  5. GLIMEPIRIDE [Suspect]
     Route: 048
     Dates: start: 20030101

REACTIONS (6)
  - COUGH [None]
  - DYSPNOEA [None]
  - INFLAMMATION [None]
  - PLEURAL EFFUSION [None]
  - PLEURAL FIBROSIS [None]
  - PLEURISY [None]
